FAERS Safety Report 23341747 (Version 1)
Quarter: 2023Q4

REPORT INFORMATION
  Report Type: Spontaneous
  Country: US (occurrence: None)
  Receive Date: 20231226
  Receipt Date: 20231226
  Transmission Date: 20240109
  Serious: Yes (Hospitalization)
  Sender: FDA-Public Use
  Company Number: None

PATIENT
  Age: 64 Year
  Sex: Male

DRUGS (4)
  1. ETHAMBUTOL HYDROCHLORIDE [Suspect]
     Active Substance: ETHAMBUTOL HYDROCHLORIDE
     Dates: start: 20231030, end: 20231220
  2. RIFAMPIN [Suspect]
     Active Substance: RIFAMPIN
  3. PYRAZINAMIDE [Suspect]
     Active Substance: PYRAZINAMIDE
  4. LEVOFLOXACIN [Suspect]
     Active Substance: LEVOFLOXACIN

REACTIONS (1)
  - Drug reaction with eosinophilia and systemic symptoms [None]

NARRATIVE: CASE EVENT DATE: 20231215
